FAERS Safety Report 23643850 (Version 1)
Quarter: 2024Q1

REPORT INFORMATION
  Report Type: Spontaneous
  Country: US (occurrence: US)
  Receive Date: 20240318
  Receipt Date: 20240318
  Transmission Date: 20240410
  Serious: No
  Sender: FDA-Public Use
  Company Number: US-Calliditas-2024CAL00405

PATIENT
  Age: 37 Year
  Sex: Male
  Weight: 93 kg

DRUGS (1)
  1. TARPEYO [Suspect]
     Active Substance: BUDESONIDE
     Indication: Haematuria
     Route: 048
     Dates: start: 20240205

REACTIONS (3)
  - Chest pain [Unknown]
  - Pain in extremity [Unknown]
  - Off label use [Unknown]
